FAERS Safety Report 24791957 (Version 2)
Quarter: 2025Q1

REPORT INFORMATION
  Report Type: Report from Study
  Country: US (occurrence: US)
  Receive Date: 20241231
  Receipt Date: 20250106
  Transmission Date: 20250409
  Serious: Yes (Other)
  Sender: ACADIA PHARMACEUTICALS
  Company Number: US-ACADIA PHARMACEUTICALS INC.-ACA-2024-PIM-008850

PATIENT
  Sex: Male

DRUGS (37)
  1. NUPLAZID [Suspect]
     Active Substance: PIMAVANSERIN TARTRATE
     Indication: Parkinson^s disease
     Dosage: 34 MILLIGRAM, QD
     Route: 048
     Dates: start: 20240430
  2. NUPLAZID [Suspect]
     Active Substance: PIMAVANSERIN TARTRATE
     Dosage: 34 MILLIGRAM, QD
     Route: 048
     Dates: start: 202406
  3. ZOLOFT [Concomitant]
     Active Substance: SERTRALINE HYDROCHLORIDE
     Dosage: 100 MILLIGRAM, QD
     Route: 048
     Dates: start: 20240618
  4. VYZULTA [Concomitant]
     Active Substance: LATANOPROSTENE BUNOD
     Dates: start: 20220104
  5. ALBUTEROL SULFATE [Concomitant]
     Active Substance: ALBUTEROL SULFATE
     Route: 048
     Dates: start: 20210524
  6. AMIODARONE HYDROCHLORIDE [Concomitant]
     Active Substance: AMIODARONE HYDROCHLORIDE
     Dosage: 200 MILLIGRAM, QD
     Route: 048
     Dates: start: 20241009
  7. AMOXICILLIN [Concomitant]
     Active Substance: AMOXICILLIN
     Dates: start: 20210528
  8. ARTIFICIAL TEARS (POLYVINYL ALCOHOL) [Concomitant]
     Active Substance: POLYVINYL ALCOHOL
     Dates: start: 20210528
  9. BENADRYL [Concomitant]
     Active Substance: DIPHENHYDRAMINE HYDROCHLORIDE
     Dosage: 25 MILLIGRAM, QD AT BEDTIME WITH MELATONIN
     Route: 048
     Dates: start: 20240430
  10. CARBIDOPA LEVODOPA [Concomitant]
     Active Substance: CARBIDOPA\LEVODOPA
     Dosage: 50 MG-200 MG
     Route: 048
     Dates: start: 20240813
  11. CLOPIDOGREL BISULFATE [Concomitant]
     Active Substance: CLOPIDOGREL BISULFATE
     Dosage: 75 MILLIGRAM, QD
     Route: 048
     Dates: start: 20240917
  12. COSOPT PF [Concomitant]
     Active Substance: DORZOLAMIDE HYDROCHLORIDE\TIMOLOL MALEATE
     Dates: start: 20250102
  13. ELIQUIS [Concomitant]
     Active Substance: APIXABAN
     Dosage: 5 MILLIGRAM, BID
     Route: 048
     Dates: start: 20240917
  14. FISH OIL [Concomitant]
     Active Substance: FISH OIL
     Dosage: 1000 MILLIGRAM, BID
     Route: 048
     Dates: start: 20180917
  15. MORNIFLUMATE [Concomitant]
     Active Substance: MORNIFLUMATE
     Dosage: 0.4 MG
     Route: 048
     Dates: start: 20240618
  16. GABAPENTIN [Concomitant]
     Active Substance: GABAPENTIN
     Dosage: 300 MILLIGRAM, BID
     Route: 048
     Dates: start: 20241009
  17. GABAPENTIN [Concomitant]
     Active Substance: GABAPENTIN
     Dosage: 100 MILLIGRAM, TAKE 2 CAPSULES BY MOUTH IN THE MORNING 1 AT NOON, 3 CAPSULE AT BEDTIME
     Route: 048
     Dates: start: 20240813
  18. INSULIN LISPRO [Concomitant]
     Active Substance: INSULIN LISPRO
     Dates: start: 20241009
  19. HYDRALAZINE HCL [Concomitant]
     Active Substance: HYDRALAZINE HYDROCHLORIDE
     Dosage: 100 MILLIGRAM, BID
     Route: 048
     Dates: start: 20241216
  20. HYDROCHLOROTHIAZIDE [Concomitant]
     Active Substance: HYDROCHLOROTHIAZIDE
     Dosage: 12.5 MG, QD
     Route: 048
     Dates: start: 20240813
  21. IBUPROFEN [Concomitant]
     Active Substance: IBUPROFEN
     Route: 048
  22. ISOSORBIDE MONONITRATE [Concomitant]
     Active Substance: ISOSORBIDE MONONITRATE
     Dosage: 60 MILLIGRAM, QD
     Route: 048
     Dates: start: 20240528
  23. KLONOPIN [Concomitant]
     Active Substance: CLONAZEPAM
     Dates: start: 20210723
  24. KLOR-CON M10 [Concomitant]
     Active Substance: POTASSIUM CHLORIDE
     Dosage: 10 MILLIEQUIVALENT, TID
     Route: 048
     Dates: start: 20210302
  25. LANTUS SOLOSTAR [Concomitant]
     Active Substance: INSULIN GLARGINE
     Dates: start: 20240506
  26. LYSINE [Concomitant]
     Active Substance: LYSINE
     Dates: start: 20240506
  27. MELATONIN [Concomitant]
     Active Substance: MELATONIN
     Route: 048
     Dates: start: 20240506
  28. METOPROLOL TARTRATE [Concomitant]
     Active Substance: METOPROLOL TARTRATE
     Dosage: 50 MILLIGRAM, BID
     Route: 048
     Dates: start: 20240813
  29. VITAMINS [Concomitant]
     Active Substance: VITAMINS
     Dosage: UNK, QD
     Route: 048
     Dates: start: 20201012
  30. NITROGLYCERIN [Concomitant]
     Active Substance: NITROGLYCERIN
     Dates: start: 20240813
  31. NORVASC [Concomitant]
     Active Substance: AMLODIPINE BESYLATE
     Dosage: 10 MILLIGRAM, QD
     Route: 048
     Dates: start: 20241009
  32. PANTOPRAZOLE SODIUM [Concomitant]
     Active Substance: PANTOPRAZOLE SODIUM
     Dates: start: 20241115
  33. SIMVASTATIN [Concomitant]
     Active Substance: SIMVASTATIN
     Dates: start: 20240709
  34. STOOL SOFTENER (DOCUSATE) [Concomitant]
     Active Substance: DOCUSATE
     Dosage: 100 MILLIGRAM, QD
     Route: 048
     Dates: start: 20210322
  35. TYLENOL EXTRA STRENGTH [Concomitant]
     Active Substance: ACETAMINOPHEN
  36. Ultra fine Nano Pen needle [Concomitant]
  37. Spacer [Concomitant]

REACTIONS (1)
  - Parkinson^s disease [Unknown]
